FAERS Safety Report 6177072-X (Version None)
Quarter: 2009Q2

REPORT INFORMATION
  Report Type: 
  Country: None (occurrence: None)
  Receive Date: 20090430
  Receipt Date: 20090430
  Transmission Date: 20091009
  Serious: No
  Sender: FDA-Public Use
  Company Number: None

PATIENT
  Sex: Female

DRUGS (2)
  1. KLONOPIN [Suspect]
     Indication: ANXIETY DISORDER
     Dosage: 1MG
  2. KLONOPIN [Suspect]
     Indication: COGNITIVE DISORDER
     Dosage: 1MG

REACTIONS (1)
  - DRUG INEFFECTIVE [None]
